FAERS Safety Report 15685786 (Version 2)
Quarter: 2019Q2

REPORT INFORMATION
  Report Type: Spontaneous
  Country: CA (occurrence: CA)
  Receive Date: 20181204
  Receipt Date: 20190410
  Transmission Date: 20190711
  Serious: Yes (Death, Hospitalization, Disabling, Other)
  Sender: FDA-Public Use
  Company Number: CA-SA-2018SA327074

PATIENT
  Sex: Male
  Weight: 92 kg

DRUGS (21)
  1. RIFAMPICIN [Suspect]
     Active Substance: RIFAMPIN
     Indication: PARASPINAL ABSCESS
     Dosage: 300 MG, BID
     Route: 048
  2. RIFAMPICIN [Suspect]
     Active Substance: RIFAMPIN
     Indication: OSTEOMYELITIS
  3. VANCOMYCIN [Suspect]
     Active Substance: VANCOMYCIN
     Indication: OSTEOMYELITIS
  4. CEFTAROLINE FOSAMIL ACETATE [Suspect]
     Active Substance: CEFTAROLINE FOSAMIL
     Indication: PARASPINAL ABSCESS
     Dosage: 300.0 MG, BID
     Route: 042
  5. CEFTAROLINE FOSAMIL ACETATE [Suspect]
     Active Substance: CEFTAROLINE FOSAMIL
     Indication: INTERVERTEBRAL DISCITIS
  6. LINEZOLID. [Suspect]
     Active Substance: LINEZOLID
     Indication: OSTEOMYELITIS
     Dosage: 600 MG, BID
     Route: 048
  7. LINEZOLID. [Suspect]
     Active Substance: LINEZOLID
     Indication: PARASPINAL ABSCESS
     Dosage: UNK UNK, UNK
     Route: 065
  8. CUBICIN [Suspect]
     Active Substance: DAPTOMYCIN
     Indication: OSTEOMYELITIS
     Dosage: 700 MG, QD
     Route: 042
  9. RIFAMPICIN [Suspect]
     Active Substance: RIFAMPIN
     Indication: INTERVERTEBRAL DISCITIS
  10. VANCOMYCIN [Suspect]
     Active Substance: VANCOMYCIN
     Indication: INTERVERTEBRAL DISCITIS
  11. DOXYCYCLINE. [Suspect]
     Active Substance: DOXYCYCLINE
     Indication: INTERVERTEBRAL DISCITIS
  12. CEFTAROLINE FOSAMIL ACETATE [Suspect]
     Active Substance: CEFTAROLINE FOSAMIL
     Indication: OSTEOMYELITIS
  13. TIGECYCLINE. [Suspect]
     Active Substance: TIGECYCLINE
     Indication: PARASPINAL ABSCESS
     Dosage: 50.0 MG, BID
     Route: 042
  14. TIGECYCLINE. [Suspect]
     Active Substance: TIGECYCLINE
     Indication: OSTEOMYELITIS
     Dosage: 100 MG, QD
     Route: 042
  15. VANCOMYCIN [Suspect]
     Active Substance: VANCOMYCIN
     Indication: PARASPINAL ABSCESS
     Dosage: UNK UNK, UNK
     Route: 065
  16. DOXYCYCLINE. [Suspect]
     Active Substance: DOXYCYCLINE
     Indication: PARASPINAL ABSCESS
     Dosage: 100.0 MG, BID
     Route: 048
  17. DOXYCYCLINE. [Suspect]
     Active Substance: DOXYCYCLINE
     Indication: OSTEOMYELITIS
  18. LINEZOLID. [Suspect]
     Active Substance: LINEZOLID
     Indication: INTERVERTEBRAL DISCITIS
  19. CUBICIN [Suspect]
     Active Substance: DAPTOMYCIN
     Indication: INTERVERTEBRAL DISCITIS
     Route: 065
  20. CUBICIN [Suspect]
     Active Substance: DAPTOMYCIN
     Indication: PARASPINAL ABSCESS
     Dosage: 900.0 MG, QD
     Route: 042
  21. TIGECYCLINE. [Suspect]
     Active Substance: TIGECYCLINE
     Indication: INTERVERTEBRAL DISCITIS

REACTIONS (6)
  - General physical health deterioration [Fatal]
  - Hypophagia [Fatal]
  - Thrombocytopenia [Fatal]
  - Staphylococcal infection [Fatal]
  - Transaminases increased [Fatal]
  - Treatment failure [Fatal]
